FAERS Safety Report 10360830 (Version 1)
Quarter: 2014Q3

REPORT INFORMATION
  Report Type: Spontaneous
  Country: CH (occurrence: CH)
  Receive Date: 20140804
  Receipt Date: 20140804
  Transmission Date: 20150326
  Serious: Yes (Life-Threatening)
  Sender: FDA-Public Use
  Company Number: CH-GLAXOSMITHKLINE-B1020590A

PATIENT
  Age: 36 Year
  Sex: Male

DRUGS (18)
  1. URSOFALK [Concomitant]
     Active Substance: URSODIOL
     Dosage: 600MG PER DAY
     Route: 048
  2. VINCRISTINE [Suspect]
     Active Substance: VINCRISTINE
     Indication: ACUTE LYMPHOCYTIC LEUKAEMIA
     Route: 042
     Dates: start: 20131126
  3. NOXAFIL [Suspect]
     Active Substance: POSACONAZOLE
     Indication: CEREBRAL ASPERGILLOSIS
     Dosage: 200MG FOUR TIMES PER DAY
     Route: 048
     Dates: start: 20131210, end: 20131225
  4. BACTRIM [Concomitant]
     Active Substance: SULFAMETHOXAZOLE\TRIMETHOPRIM
     Dosage: 160MG SEE DOSAGE TEXT
  5. MAGNESIUM SULPHATE [Concomitant]
     Active Substance: MAGNESIUM SULFATE
     Dosage: 16MMOL PER DAY
     Route: 042
  6. VANCOCIN [Concomitant]
     Active Substance: VANCOMYCIN HYDROCHLORIDE
     Dosage: 500MG PER DAY
     Route: 048
  7. CHOLECALCIFEROL [Concomitant]
     Active Substance: CHOLECALCIFEROL
     Dosage: 1000IU PER DAY
     Route: 048
  8. VALTREX [Concomitant]
     Active Substance: VALACYCLOVIR HYDROCHLORIDE
     Dosage: 500MG PER DAY
     Route: 048
     Dates: start: 20131126
  9. TRAMAL [Concomitant]
     Active Substance: TRAMADOL
     Dosage: 50MG PER DAY
     Route: 048
  10. SPRYCEL [Suspect]
     Active Substance: DASATINIB
     Indication: ACUTE LYMPHOCYTIC LEUKAEMIA
     Dosage: 4MG THREE TIMES PER DAY
     Route: 048
     Dates: start: 20131126
  11. ULCOGANT [Concomitant]
     Active Substance: SUCRALFATE
     Dosage: 1G PER DAY
     Route: 048
  12. HEPARIN [Concomitant]
     Active Substance: HEPARIN SODIUM
     Dosage: 1000IU PER DAY
     Route: 042
  13. ZANTAC [Concomitant]
     Active Substance: RANITIDINE HYDROCHLORIDE
     Dosage: 300MG PER DAY
     Route: 048
  14. PHENOXYMETHYL PENICILLIN POTASSIUM [Concomitant]
     Dosage: 1IU PER DAY
     Route: 048
     Dates: start: 20131126
  15. SODIUM CHLORIDE. [Concomitant]
     Active Substance: SODIUM CHLORIDE
     Route: 042
  16. ZOFRAN [Suspect]
     Active Substance: ONDANSETRON HYDROCHLORIDE
     Indication: PRODUCT USED FOR UNKNOWN INDICATION
     Dosage: 4MG THREE TIMES PER DAY
     Route: 048
     Dates: start: 20131218, end: 20131224
  17. AUGMENTIN [Concomitant]
     Active Substance: AMOXICILLIN\CLAVULANATE POTASSIUM
     Dosage: 1.2G THREE TIMES PER DAY
     Route: 042
     Dates: start: 20131218
  18. STILNOX [Concomitant]
     Active Substance: ZOLPIDEM TARTRATE
     Dosage: 10MG PER DAY
     Route: 048

REACTIONS (1)
  - Ileus paralytic [Recovered/Resolved]

NARRATIVE: CASE EVENT DATE: 20131224
